FAERS Safety Report 5494280-1 (Version None)
Quarter: 2007Q4

REPORT INFORMATION
  Report Type: 
  Country: None (occurrence: None)
  Receive Date: 20071012
  Receipt Date: 20070806
  Transmission Date: 20080405
  Serious: Yes (Other)
  Sender: FDA-Public Use
  Company Number: US-2007-029095

PATIENT
  Age: 36 Year
  Sex: Female
  Weight: 52 kg

DRUGS (1)
  1. YAZ [Suspect]
     Indication: ORAL CONTRACEPTION
     Dosage: 1 TAB(S), 1X/DAY, ORAL
     Route: 048
     Dates: start: 20070601

REACTIONS (5)
  - ANXIETY [None]
  - DEPRESSION [None]
  - MENTAL IMPAIRMENT [None]
  - MOOD SWINGS [None]
  - PREMENSTRUAL SYNDROME [None]
